FAERS Safety Report 8994428 (Version 1)
Quarter: 2012Q4

REPORT INFORMATION
  Report Type: Spontaneous
  Country: US (occurrence: None)
  Receive Date: 20121228
  Receipt Date: 20121228
  Transmission Date: 20130627
  Serious: No
  Sender: FDA-Public Use
  Company Number: None

PATIENT
  Age: 54 Year
  Sex: Male
  Weight: 86.9 kg

DRUGS (1)
  1. RITUXIMAB [Suspect]
     Indication: CANCER
     Route: 042
     Dates: start: 20121218, end: 20121218

REACTIONS (5)
  - Angioedema [None]
  - Nausea [None]
  - Vomiting [None]
  - Hypotension [None]
  - Infusion related reaction [None]
